FAERS Safety Report 5835647-9 (Version None)
Quarter: 2008Q3

REPORT INFORMATION
  Report Type: 
  Country: None (occurrence: None)
  Receive Date: 20080801
  Receipt Date: 20080723
  Transmission Date: 20090109
  Serious: Yes (Hospitalization)
  Sender: FDA-Public Use
  Company Number: WAES 0805USA05040

PATIENT
  Age: 78 Year
  Sex: Male

DRUGS (38)
  1. CAP VORINOSTAT UNK [Suspect]
     Indication: DRUG USE FOR UNKNOWN INDICATION
     Dosage: 400 MG/DAILY/PO, 400 MG/DAILY/PO
     Route: 048
     Dates: start: 20080331, end: 20080413
  2. CAP VORINOSTAT UNK [Suspect]
     Indication: DRUG USE FOR UNKNOWN INDICATION
     Dosage: 400 MG/DAILY/PO, 400 MG/DAILY/PO
     Route: 048
     Dates: start: 20080430, end: 20080513
  3. CAP VORINOSTAT UNK [Suspect]
     Indication: DRUG USE FOR UNKNOWN INDICATION
     Dosage: 400 MG/DAILY/PO, 400 MG/DAILY/PO
     Route: 048
     Dates: start: 20080528, end: 20080610
  4. DECITABINE [Suspect]
     Dosage: 45 MG/M[2]/UNK/IV, 45.4 MG/M[2]/UNK/IV, 44.8 MG/M[2]/UNK/IV
     Route: 042
     Dates: start: 20080331, end: 20080404
  5. DECITABINE [Suspect]
     Dosage: 45 MG/M[2]/UNK/IV, 45.4 MG/M[2]/UNK/IV, 44.8 MG/M[2]/UNK/IV
     Route: 042
     Dates: start: 20080430, end: 20080504
  6. DECITABINE [Suspect]
     Dosage: 45 MG/M[2]/UNK/IV, 45.4 MG/M[2]/UNK/IV, 44.8 MG/M[2]/UNK/IV
     Route: 042
     Dates: start: 20080528, end: 20080601
  7. BACTRIM DS [Concomitant]
  8. COLACE [Concomitant]
  9. FLOMAX (MORNIFLUMATE) [Concomitant]
  10. LASIX [Concomitant]
  11. LOTENSIN [Concomitant]
  12. LOVENOX [Concomitant]
  13. NORVASC [Concomitant]
  14. PRINIVIL [Concomitant]
  15. PROTONIX [Concomitant]
  16. [THERAPY UNSPECIFIED] [Concomitant]
  17. ACETAMINOPHEN [Concomitant]
  18. ACYCLOVIR [Concomitant]
  19. ALLOPURINOL [Concomitant]
  20. CHLORHEXIDINE GLUCONATE [Concomitant]
  21. CLINDAMYCIN [Concomitant]
  22. DIGOXIN [Concomitant]
  23. DIPHENHYDRAMINE HYDROCHLORIDE [Concomitant]
  24. HEPARIN [Concomitant]
  25. INSULIN [Concomitant]
  26. LINEZOLID [Concomitant]
  27. LORAZEPAM [Concomitant]
  28. MAGNESIUM SULFATE [Concomitant]
  29. METFORMIN HCL [Concomitant]
  30. MORPHINE [Concomitant]
  31. MOXIFLOXACIN HYDROCHLORIDE [Concomitant]
  32. NYSTATIN [Concomitant]
  33. OXYCODONE HCL [Concomitant]
  34. PIPERACILLIN [Concomitant]
  35. POTASSIUM CHLORIDE [Concomitant]
  36. TECHNETIUM TC 99M MEDRONATE [Concomitant]
  37. VANCOMYCIN HCL [Concomitant]
  38. ZOLPIDEM TARTRATE [Concomitant]

REACTIONS (14)
  - ASTHENIA [None]
  - CELLULITIS [None]
  - CULTURE WOUND POSITIVE [None]
  - EPIDIDYMITIS [None]
  - FEBRILE NEUTROPENIA [None]
  - FURUNCLE [None]
  - HYPERBILIRUBINAEMIA [None]
  - HYPERGLYCAEMIA [None]
  - MASTOIDITIS [None]
  - NAUSEA [None]
  - PYREXIA [None]
  - RASH PUSTULAR [None]
  - STAPHYLOCOCCAL INFECTION [None]
  - VOMITING [None]
